FAERS Safety Report 5768808-8 (Version None)
Quarter: 2008Q2

REPORT INFORMATION
  Report Type: 
  Country: None (occurrence: None)
  Receive Date: 20080612
  Receipt Date: 20080312
  Transmission Date: 20081010
  Serious: No
  Sender: FDA-Public Use
  Company Number: US-ABBOTT-08P-163-0442434-00

PATIENT
  Sex: Male
  Weight: 77.18 kg

DRUGS (3)
  1. HUMIRA [Suspect]
     Indication: ANKYLOSING SPONDYLITIS
     Route: 058
     Dates: start: 20070701, end: 20071101
  2. LORATADINE [Concomitant]
     Indication: PAIN
     Route: 048
     Dates: start: 20050101
  3. TRAZODONE HCL [Concomitant]
     Indication: SLEEP DISORDER
     Route: 048
     Dates: start: 20050101

REACTIONS (1)
  - INJECTION SITE IRRITATION [None]
